FAERS Safety Report 25365620 (Version 1)
Quarter: 2025Q2

REPORT INFORMATION
  Report Type: Report from Study
  Country: US (occurrence: US)
  Receive Date: 20250527
  Receipt Date: 20250527
  Transmission Date: 20250717
  Serious: No
  Sender: MALLINCKRODT
  Company Number: US-MALLINCKRODT-MNK202502398

PATIENT
  Age: 43 Year
  Sex: Female

DRUGS (5)
  1. CORTICOTROPIN [Suspect]
     Active Substance: CORTICOTROPIN
     Indication: Sarcoidosis
     Dosage: 40 UNITS
     Route: 058
     Dates: start: 20250304
  2. PREDNISONE [Suspect]
     Active Substance: PREDNISONE
     Indication: Product used for unknown indication
  3. PREDNISONE [Suspect]
     Active Substance: PREDNISONE
  4. PREDNISONE [Suspect]
     Active Substance: PREDNISONE
  5. PREDNISONE [Suspect]
     Active Substance: PREDNISONE

REACTIONS (13)
  - Appetite disorder [Unknown]
  - Eye pain [Unknown]
  - Bone pain [Unknown]
  - Myalgia [Not Recovered/Not Resolved]
  - Feeling abnormal [Unknown]
  - Abdominal pain upper [Not Recovered/Not Resolved]
  - Weight loss poor [Not Recovered/Not Resolved]
  - Irritability [Unknown]
  - Insomnia [Unknown]
  - Injection site bruising [Not Recovered/Not Resolved]
  - Viral infection [Unknown]
  - Fatigue [Not Recovered/Not Resolved]
  - Mood altered [Not Recovered/Not Resolved]

NARRATIVE: CASE EVENT DATE: 20250101
